FAERS Safety Report 20374284 (Version 1)
Quarter: 2022Q1

REPORT INFORMATION
  Report Type: Spontaneous
  Country: GB (occurrence: None)
  Receive Date: 20220125
  Receipt Date: 20220125
  Transmission Date: 20220423
  Serious: Yes (Death)
  Sender: FDA-Public Use
  Company Number: GB-ROCHE-2937234

PATIENT
  Age: 75 Year
  Sex: Male

DRUGS (1)
  1. TOCILIZUMAB [Suspect]
     Active Substance: TOCILIZUMAB
     Indication: Rheumatoid arthritis
     Dosage: 162MG/0.9ML
     Route: 058
     Dates: start: 202108, end: 202112

REACTIONS (4)
  - Device failure [Unknown]
  - Product leakage [Unknown]
  - Death [Fatal]
  - COVID-19 [Fatal]

NARRATIVE: CASE EVENT DATE: 20211012
